FAERS Safety Report 15983197 (Version 1)
Quarter: 2019Q1

REPORT INFORMATION
  Report Type: Spontaneous
  Country: DK (occurrence: DK)
  Receive Date: 20190219
  Receipt Date: 20190219
  Transmission Date: 20190418
  Serious: Yes (Other)
  Sender: FDA-Public Use
  Company Number: DK-009507513-1902DNK006891

PATIENT
  Age: 46 Year
  Sex: Female

DRUGS (2)
  1. COZAAR COMP. [Suspect]
     Active Substance: HYDROCHLOROTHIAZIDE\LOSARTAN POTASSIUM
     Indication: HYPERTENSION
     Dosage: 1 DOSAGE FORM, QD; FILM-COATED TABLET
     Route: 048
     Dates: end: 20171214
  2. SPARKAL [Suspect]
     Active Substance: AMILORIDE HYDROCHLORIDE
     Indication: HYPERTENSION
     Dosage: THE PATIENT RECEIVED SPARKAL UNTIL MID/END OF THE 1990S;DOSE: UNKNOWN. STRENGTH: UNKNOWN
     Route: 048

REACTIONS (3)
  - Skin cancer [Not Recovered/Not Resolved]
  - Actinic keratosis [Not Recovered/Not Resolved]
  - Basal cell carcinoma [Not Recovered/Not Resolved]

NARRATIVE: CASE EVENT DATE: 200409
